FAERS Safety Report 4494217-8 (Version None)
Quarter: 2004Q4

REPORT INFORMATION
  Report Type: 
  Country: None (occurrence: None)
  Receive Date: 20041104
  Receipt Date: 20041104
  Transmission Date: 20050328
  Serious: Yes (Life-Threatening)
  Sender: FDA-Public Use
  Company Number: None

PATIENT
  Sex: Female
  Weight: 63.5036 kg

DRUGS (1)
  1. PAXIL [Suspect]
     Indication: DEPRESSION
     Dosage: 1 PER DAY

REACTIONS (6)
  - ABNORMAL BEHAVIOUR [None]
  - DRUG WITHDRAWAL SYNDROME [None]
  - HIP FRACTURE [None]
  - PELVIC FRACTURE [None]
  - ROAD TRAFFIC ACCIDENT [None]
  - SUICIDE ATTEMPT [None]
